FAERS Safety Report 10777268 (Version 1)
Quarter: 2015Q1

REPORT INFORMATION
  Report Type: Spontaneous
  Country: US (occurrence: US)
  Receive Date: 20150209
  Receipt Date: 20150209
  Transmission Date: 20150721
  Serious: No
  Sender: FDA-Public Use
  Company Number: US-RECKITT BENCKISER PHARMACEUTICAL, INC-RB-62664-2014

PATIENT

DRUGS (6)
  1. IRON [Concomitant]
     Active Substance: IRON
     Route: 063
     Dates: start: 20131209
  2. NICOTINE. [Concomitant]
     Active Substance: NICOTINE
     Indication: PRODUCT USED FOR UNKNOWN INDICATION
     Dosage: 1/2 PACK OF CIGARETTES A DAY; 10 PER DAY
     Route: 064
     Dates: start: 201303, end: 20131209
  3. NICOTINE. [Concomitant]
     Active Substance: NICOTINE
     Dosage: 10 CIGARETTES DAILY
     Route: 063
     Dates: start: 20131209
  4. IRON [Concomitant]
     Active Substance: IRON
     Indication: ANAEMIA
     Route: 064
     Dates: start: 2013, end: 20131209
  5. BUPRENORPHINE [Suspect]
     Active Substance: BUPRENORPHINE
     Indication: DRUG DEPENDENCE
     Dosage: DAILY DOSAGE 4-8 MG
     Route: 064
     Dates: start: 201303, end: 20131209
  6. BUPRENORPHINE [Suspect]
     Active Substance: BUPRENORPHINE
     Dosage: DAILY DOSAGE 4-8 MG
     Route: 063
     Dates: start: 20131209

REACTIONS (5)
  - Exposure during breast feeding [Not Recovered/Not Resolved]
  - Feeding disorder neonatal [Not Recovered/Not Resolved]
  - Candida infection [Not Recovered/Not Resolved]
  - Macrosomia [Unknown]
  - Foetal exposure during pregnancy [Recovered/Resolved]

NARRATIVE: CASE EVENT DATE: 201303
